FAERS Safety Report 21925231 (Version 1)
Quarter: 2023Q1

REPORT INFORMATION
  Report Type: Spontaneous
  Country: US (occurrence: US)
  Receive Date: 20230130
  Receipt Date: 20230130
  Transmission Date: 20230418
  Serious: No
  Sender: FDA-Public Use
  Company Number: US-STRIDES ARCOLAB LIMITED-2022SP006122

PATIENT
  Age: 32 Year
  Sex: Female

DRUGS (6)
  1. CALCITRIOL [Suspect]
     Active Substance: CALCITRIOL
     Indication: Hypocalcaemia
     Dosage: 0.5 MICROGRAM, BID
     Route: 048
  2. CALCITRIOL [Suspect]
     Active Substance: CALCITRIOL
     Dosage: 0.5 MICROGRAM PER DAY
     Route: 048
  3. CALCIUM GLUCONATE [Suspect]
     Active Substance: CALCIUM GLUCONATE
     Indication: Hypocalcaemia
     Dosage: 2 GRAM
     Route: 042
  4. CALCIUM CARBONATE [Suspect]
     Active Substance: CALCIUM CARBONATE
     Indication: Hypocalcaemia
     Dosage: 1 GRAM, QID
     Route: 048
  5. CALCIUM CARBONATE [Suspect]
     Active Substance: CALCIUM CARBONATE
     Dosage: 1 GRAM, TID
     Route: 048
  6. LEVOTHYROXINE [Suspect]
     Active Substance: LEVOTHYROXINE
     Indication: Thyroid therapy
     Dosage: 125 MICROGRAM PER DAY
     Route: 065

REACTIONS (2)
  - Hypercalcaemia [Recovered/Resolved]
  - Maternal exposure during breast feeding [Unknown]
